FAERS Safety Report 5530461-6 (Version None)
Quarter: 2007Q4

REPORT INFORMATION
  Report Type: 
  Country: None (occurrence: None)
  Receive Date: 20071130
  Receipt Date: 20071128
  Transmission Date: 20080405
  Serious: Yes (Hospitalization)
  Sender: FDA-Public Use
  Company Number: FR-BRISTOL-MYERS SQUIBB COMPANY-13996822

PATIENT
  Age: 45 Year
  Sex: Female

DRUGS (4)
  1. AMIKLIN INJ [Suspect]
     Route: 042
     Dates: start: 20071106
  2. ROCEPHIN [Suspect]
     Dates: end: 20071108
  3. INVANZ [Suspect]
     Dates: start: 20071108
  4. ZOPHREN [Suspect]
     Dates: start: 20071106, end: 20071112

REACTIONS (1)
  - ACUTE GENERALISED EXANTHEMATOUS PUSTULOSIS [None]
